FAERS Safety Report 25002364 (Version 1)
Quarter: 2025Q1

REPORT INFORMATION
  Report Type: Spontaneous
  Country: CZ (occurrence: CZ)
  Receive Date: 20250224
  Receipt Date: 20250224
  Transmission Date: 20250409
  Serious: Yes (Other)
  Sender: MSN LABORATORIES PRIVATE LIMITED
  Company Number: CZ-Accord-465017

PATIENT

DRUGS (3)
  1. BORTEZOMIB [Suspect]
     Active Substance: BORTEZOMIB
     Indication: Waldenstrom^s macroglobulinaemia
     Route: 065
  2. RITUXIMAB [Concomitant]
     Active Substance: RITUXIMAB
     Indication: Waldenstrom^s macroglobulinaemia
     Route: 065
  3. DEXAMETHASONE [Concomitant]
     Active Substance: DEXAMETHASONE
     Indication: Waldenstrom^s macroglobulinaemia
     Route: 065

REACTIONS (2)
  - Neurotoxicity [Unknown]
  - Off label use [Unknown]
